FAERS Safety Report 6248307-X (Version None)
Quarter: 2009Q2

REPORT INFORMATION
  Report Type: 
  Country: None (occurrence: None)
  Receive Date: 20090629
  Receipt Date: 20090616
  Transmission Date: 20091009
  Serious: Yes (Other)
  Sender: FDA-Public Use
  Company Number: PHEH2009US06345

PATIENT
  Sex: Male

DRUGS (5)
  1. DIOVAN [Suspect]
     Dosage: 80 MG/DAY
  2. DIOVAN [Suspect]
     Dosage: 160 MG/DAY
  3. LIPITOR [Suspect]
     Dosage: 20 MG, UNK
  4. LORAZEPAM [Suspect]
     Dosage: 1 MG, UNK
  5. ASPIRIN [Concomitant]
     Dosage: 81 MG, UNK

REACTIONS (6)
  - ABDOMINAL PAIN [None]
  - ARTHRALGIA [None]
  - BACK PAIN [None]
  - HEART RATE IRREGULAR [None]
  - MYALGIA [None]
  - TENDON PAIN [None]
